FAERS Safety Report 11985406 (Version 1)
Quarter: 2016Q1

REPORT INFORMATION
  Report Type: Spontaneous
  Country: CZ (occurrence: CZ)
  Receive Date: 20160201
  Receipt Date: 20160201
  Transmission Date: 20160526
  Serious: Yes (Other)
  Sender: FDA-Public Use
  Company Number: CZ-BAXTER-2016BAX003483

PATIENT
  Sex: Male

DRUGS (15)
  1. VINCRISTINE [Suspect]
     Active Substance: VINCRISTINE
     Route: 065
     Dates: start: 20131216
  2. PREDNISONE. [Suspect]
     Active Substance: PREDNISONE
     Route: 065
     Dates: start: 20131216
  3. ENDOXAN 1G [Suspect]
     Active Substance: CYCLOPHOSPHAMIDE
     Route: 042
     Dates: start: 20131216
  4. VINCRISTINE [Suspect]
     Active Substance: VINCRISTINE
     Indication: CASTLEMAN^S DISEASE
     Route: 065
     Dates: start: 20131112
  5. MABTHERA [Suspect]
     Active Substance: RITUXIMAB
     Indication: CASTLEMAN^S DISEASE
     Route: 065
     Dates: start: 20131112
  6. MABTHERA [Suspect]
     Active Substance: RITUXIMAB
     Route: 065
     Dates: start: 20131216
  7. ADRIAMYCIN [Suspect]
     Active Substance: DOXORUBICIN HYDROCHLORIDE
     Indication: CASTLEMAN^S DISEASE
     Route: 065
     Dates: start: 20131112
  8. ENDOXAN 1G [Suspect]
     Active Substance: CYCLOPHOSPHAMIDE
     Indication: CASTLEMAN^S DISEASE
     Route: 042
     Dates: start: 20130910
  9. MABTHERA [Suspect]
     Active Substance: RITUXIMAB
     Route: 065
     Dates: start: 201408
  10. ENDOXAN 1G [Suspect]
     Active Substance: CYCLOPHOSPHAMIDE
     Dosage: CHOP THERAPY
     Route: 042
     Dates: start: 20131112
  11. MABTHERA [Suspect]
     Active Substance: RITUXIMAB
     Route: 065
  12. MYRIN [Suspect]
     Active Substance: THALIDOMIDE
     Indication: CASTLEMAN^S DISEASE
     Route: 065
  13. ADRIAMYCIN [Suspect]
     Active Substance: DOXORUBICIN HYDROCHLORIDE
     Route: 065
     Dates: start: 20131216
  14. PREDNISONE. [Suspect]
     Active Substance: PREDNISONE
     Indication: CASTLEMAN^S DISEASE
     Route: 065
     Dates: start: 20131112
  15. DEXAMETHASONE. [Suspect]
     Active Substance: DEXAMETHASONE
     Indication: CASTLEMAN^S DISEASE
     Route: 065

REACTIONS (7)
  - Neutropenia [Unknown]
  - Lung infection [Unknown]
  - Asthenia [Unknown]
  - Dyspnoea [Unknown]
  - Peripheral swelling [Unknown]
  - Therapeutic product ineffective [Not Recovered/Not Resolved]
  - Infection [Unknown]

NARRATIVE: CASE EVENT DATE: 201311
